FAERS Safety Report 4390813-7 (Version None)
Quarter: 2004Q3

REPORT INFORMATION
  Report Type: 
  Country: None (occurrence: None)
  Receive Date: 20040706
  Receipt Date: 20040706
  Transmission Date: 20050211
  Serious: Yes (Hospitalization)
  Sender: FDA-Public Use
  Company Number: None

PATIENT
  Age: 70 Year
  Sex: Male
  Weight: 80.9217 kg

DRUGS (10)
  1. LEUKINE [Suspect]
     Indication: METASTATIC RENAL CELL CARCINOMA
     Dosage: 500 MCG/Q 5 DAYS S/C
     Dates: start: 20040420, end: 20040424
  2. LEUKINE [Suspect]
     Indication: METASTATIC RENAL CELL CARCINOMA
     Dosage: 500 MCG/Q 5 DAYS S/C
     Dates: start: 20040504, end: 20040508
  3. LEUKINE [Suspect]
     Indication: METASTATIC RENAL CELL CARCINOMA
     Dosage: 500 MCG/Q 5 DAYS S/C
     Dates: start: 20040608, end: 20040612
  4. LEUKINE [Suspect]
     Indication: METASTATIC RENAL CELL CARCINOMA
     Dosage: 500 MCG/Q 5 DAYS S/C
     Dates: start: 20040511
  5. LEUKINE [Suspect]
     Indication: METASTATIC RENAL CELL CARCINOMA
     Dosage: 500 MCG/Q 5 DAYS S/C
     Dates: start: 20040522
  6. GEMCITABINE [Suspect]
     Dosage: 1 GM/M2
     Dates: start: 20040426
  7. GEMCITABINE [Suspect]
     Dosage: 1 GM/M2
     Dates: start: 20040501
  8. GEMCITABINE [Suspect]
     Dosage: 1 GM/M2
     Dates: start: 20040601
  9. LEUCOVORIN CALCIUM [Suspect]
     Dosage: 260 MG/M2
     Dates: start: 20040510
  10. FLUOROURACIL [Suspect]
     Dosage: 400 MG/M2
     Dates: start: 20040601

REACTIONS (2)
  - DISEASE PROGRESSION [None]
  - FEMUR FRACTURE [None]
